FAERS Safety Report 9751463 (Version 3)
Quarter: 2015Q2

REPORT INFORMATION
  Report Type: Spontaneous
  Country: US (occurrence: US)
  Receive Date: 20131212
  Receipt Date: 20150519
  Transmission Date: 20150821
  Serious: Yes (Hospitalization)
  Sender: FDA-Public Use
  Company Number: PHHY2013US142532

PATIENT
  Age: 77 Year
  Sex: Male

DRUGS (4)
  1. ACETYLSALICYLIC ACID [Suspect]
     Active Substance: ASPIRIN
     Indication: PRODUCT USED FOR UNKNOWN INDICATION
     Route: 065
  2. ALENDRONIC ACID [Suspect]
     Active Substance: ALENDRONIC ACID
     Dosage: 70 MG, QD
  3. OMEPRAZOLE. [Suspect]
     Active Substance: OMEPRAZOLE
     Indication: PRODUCT USED FOR UNKNOWN INDICATION
     Route: 065
  4. ALENDRONIC ACID [Suspect]
     Active Substance: ALENDRONIC ACID
     Indication: BONE DENSITY DECREASED
     Dosage: 70 MG, QW
     Route: 065

REACTIONS (9)
  - Haemoptysis [Recovered/Resolved]
  - Laryngeal ulceration [Recovered/Resolved]
  - Dysphagia [Recovered/Resolved]
  - Cough [Recovered/Resolved]
  - Laryngeal haemorrhage [Recovered/Resolved]
  - Wrong drug administered [Recovered/Resolved]
  - Mucous membrane disorder [Recovered/Resolved]
  - Oral mucosal erythema [Recovered/Resolved]
  - Accidental overdose [Recovered/Resolved]
